FAERS Safety Report 11809840 (Version 2)
Quarter: 2015Q4

REPORT INFORMATION
  Report Type: Report from Study
  Country: CA (occurrence: CA)
  Receive Date: 20151208
  Receipt Date: 20151215
  Transmission Date: 20160305
  Serious: Yes (Other)
  Sender: FDA-Public Use
  Company Number: CA-ROCHE-1429353

PATIENT
  Age: 55 Year
  Sex: Male

DRUGS (10)
  1. ACTEMRA [Suspect]
     Active Substance: TOCILIZUMAB
     Indication: RHEUMATOID ARTHRITIS
     Route: 042
     Dates: start: 20140604, end: 20140702
  2. KADIAN [Concomitant]
     Active Substance: MORPHINE SULFATE
  3. MELOXICAM. [Concomitant]
     Active Substance: MELOXICAM
  4. ACTEMRA [Suspect]
     Active Substance: TOCILIZUMAB
     Indication: RHEUMATOID ARTHRITIS
     Route: 058
     Dates: start: 20140723
  5. CESAMET [Concomitant]
     Active Substance: NABILONE
  6. PREDNISONE. [Concomitant]
     Active Substance: PREDNISONE
  7. HYDROCHLOROTHIAZIDE. [Concomitant]
     Active Substance: HYDROCHLOROTHIAZIDE
  8. GABAPENTIN. [Concomitant]
     Active Substance: GABAPENTIN
  9. OXYCODONE [Concomitant]
     Active Substance: OXYCODONE
  10. COZAAR [Concomitant]
     Active Substance: LOSARTAN POTASSIUM

REACTIONS (7)
  - Drug effect decreased [Unknown]
  - Atrial fibrillation [Unknown]
  - Infusion related reaction [Recovered/Resolved]
  - Injection site reaction [Not Recovered/Not Resolved]
  - Cardiac disorder [Unknown]
  - Heart rate decreased [Unknown]
  - Influenza [Unknown]

NARRATIVE: CASE EVENT DATE: 20140702
